FAERS Safety Report 11331574 (Version 23)
Quarter: 2018Q3

REPORT INFORMATION
  Report Type: Spontaneous
  Country: DE (occurrence: DE)
  Receive Date: 20150803
  Receipt Date: 20180906
  Transmission Date: 20181010
  Serious: Yes (Death, Congenital Anomaly, Other)
  Sender: FDA-Public Use
  Company Number: PHHY2015DE091766

PATIENT
  Weight: .56 kg

DRUGS (40)
  1. RASILEZ [Suspect]
     Active Substance: ALISKIREN
     Indication: FOETAL EXPOSURE DURING PREGNANCY
     Dosage: MATERNAL DOSE, 300 MG QD
     Route: 064
     Dates: start: 20111214, end: 20120117
  2. ADVAGRAF [Suspect]
     Active Substance: TACROLIMUS
     Indication: FOETAL EXPOSURE DURING PREGNANCY
  3. TOREM [Suspect]
     Active Substance: TORSEMIDE
     Indication: FOETAL EXPOSURE DURING PREGNANCY
  4. MIFEGYNE [Concomitant]
     Active Substance: MIFEPRISTONE
     Dosage: UNK
     Route: 064
     Dates: start: 20120320, end: 20120320
  5. NOVAMINSULFON [Suspect]
     Active Substance: METAMIZOLE
     Dosage: MATERNAL DOSE: UNKNOWN
     Route: 064
  6. TOREM [Suspect]
     Active Substance: TORSEMIDE
     Indication: FOETAL EXPOSURE DURING PREGNANCY
     Dosage: 100 [MG/D]; 0?13.6 GESTATIONAL WEEK
     Route: 064
     Dates: start: 20111214, end: 20120320
  7. NICOTINE. [Suspect]
     Active Substance: NICOTINE
     Route: 064
  8. MIFEGYNE [Concomitant]
     Active Substance: MIFEPRISTONE
     Dosage: UNK; 13.6 GESTATIONAL WEEK
     Route: 064
     Dates: start: 20120320, end: 20120320
  9. SALBUTAMOL [Suspect]
     Active Substance: ALBUTEROL
     Dosage: UNK, IF REQUIRED; TRIMESTER: FIRST+SECOND
     Route: 064
  10. ADVAGRAF [Suspect]
     Active Substance: TACROLIMUS
     Dosage: 6 [MG/D]; 0?13.6 GESTATIONAL WEEK
     Route: 064
     Dates: start: 20111214, end: 20120320
  11. MIFEGYNE [Concomitant]
     Active Substance: MIFEPRISTONE
     Indication: ABORTION INDUCED
  12. CYTOTEC [Concomitant]
     Active Substance: MISOPROSTOL
     Indication: ABORTION INDUCED
  13. CYTOTEC [Concomitant]
     Active Substance: MISOPROSTOL
     Dosage: UNK; 13.6 GESTATIONAL WEEK
     Route: 064
     Dates: start: 20120320, end: 20120320
  14. PREDNISOLONE. [Suspect]
     Active Substance: PREDNISOLONE
     Indication: FOETAL EXPOSURE DURING PREGNANCY
     Dosage: MATERNAL DOSE, 10 MG (EVERY OTHER DAY)
     Route: 064
     Dates: start: 20111214, end: 20120320
  15. ACETYLSALICYLIC ACID [Suspect]
     Active Substance: ASPIRIN
     Indication: FOETAL EXPOSURE DURING PREGNANCY
     Dosage: MATERNAL DOSE, 100 MG QD
     Route: 064
     Dates: start: 20111214, end: 20120320
  16. ADVAGRAF [Suspect]
     Active Substance: TACROLIMUS
     Dosage: MATERNAL DOSE, 6 MG QD
     Route: 064
  17. QUENSYL [Suspect]
     Active Substance: HYDROXYCHLOROQUINE
     Dosage: MATERNAL DOSE, 400 QD
     Route: 064
     Dates: start: 20111214, end: 20120320
  18. QUENSYL [Suspect]
     Active Substance: HYDROXYCHLOROQUINE
     Dosage: 400 [MG/D (2X200)]; 0?13.6 GESTATIONAL WEEK
     Route: 064
     Dates: start: 20111214, end: 20120320
  19. TORASEMIDE [Suspect]
     Active Substance: TORSEMIDE
     Indication: FOETAL EXPOSURE DURING PREGNANCY
     Route: 064
  20. XARELTO [Suspect]
     Active Substance: RIVAROXABAN
     Route: 064
  21. NICOTINE. [Suspect]
     Active Substance: NICOTINE
     Indication: FOETAL EXPOSURE DURING PREGNANCY
  22. CYTOTEC [Concomitant]
     Active Substance: MISOPROSTOL
     Dosage: UNK
     Route: 064
     Dates: start: 20120320, end: 20120320
  23. CYCLOPHOSPHAMIDE. [Concomitant]
     Active Substance: CYCLOPHOSPHAMIDE
     Dosage: 3000 [MG CUMULATIVE]; PRECONCEPTIONAL
     Route: 064
  24. SIMVASTATIN. [Suspect]
     Active Substance: SIMVASTATIN
     Indication: FOETAL EXPOSURE DURING PREGNANCY
     Dosage: UNK
     Route: 064
     Dates: start: 20111214, end: 20120320
  25. SALBUTAMOL [Suspect]
     Active Substance: ALBUTEROL
     Indication: FOETAL EXPOSURE DURING PREGNANCY
     Dosage: MATERNAL DOSE: UNKNOWN
     Route: 064
  26. DELIX (RAMIPRIL) [Suspect]
     Active Substance: RAMIPRIL
     Indication: FOETAL EXPOSURE DURING PREGNANCY
     Dosage: 20 MG, QD; 0?13.6 GESTATIONAL WEEK
     Route: 064
     Dates: start: 20111214, end: 20120320
  27. XARELTO [Suspect]
     Active Substance: RIVAROXABAN
     Indication: FOETAL EXPOSURE DURING PREGNANCY
  28. CYTOTEC [Concomitant]
     Active Substance: MISOPROSTOL
     Indication: FOETAL EXPOSURE DURING PREGNANCY
  29. RASILEZ [Suspect]
     Active Substance: ALISKIREN
     Indication: FOETAL EXPOSURE DURING PREGNANCY
     Dosage: 300 [MG/D]; 0?4.6 GESTATIONAL WEEK
     Route: 064
     Dates: start: 20111214, end: 20120117
  30. RASILEZ [Suspect]
     Active Substance: ALISKIREN
     Indication: FOETAL EXPOSURE DURING PREGNANCY
  31. PANTOPRAZOLE [Suspect]
     Active Substance: PANTOPRAZOLE
     Indication: FOETAL EXPOSURE DURING PREGNANCY
     Dosage: MATERNAL DOSE, 40 MG, QD
     Route: 064
     Dates: start: 20111214, end: 20120320
  32. EZETIMIBE. [Suspect]
     Active Substance: EZETIMIBE
     Indication: FOETAL EXPOSURE DURING PREGNANCY
     Dosage: MATERNAL DOSE: UNKNOWN
     Route: 064
  33. NOVAMINSULFON [Suspect]
     Active Substance: METAMIZOLE
     Indication: FOETAL EXPOSURE DURING PREGNANCY
  34. QUENSYL [Suspect]
     Active Substance: HYDROXYCHLOROQUINE
     Indication: FOETAL EXPOSURE DURING PREGNANCY
  35. TOREM [Suspect]
     Active Substance: TORSEMIDE
     Dosage: MATERNAL DOSE, 100 MG QD
     Route: 064
     Dates: start: 20111214, end: 20120320
  36. MIFEGYNE [Concomitant]
     Active Substance: MIFEPRISTONE
     Indication: FOETAL EXPOSURE DURING PREGNANCY
  37. RITUXIMAB. [Suspect]
     Active Substance: RITUXIMAB
     Dosage: UNK, LAST TIME IN DECEMBER 2011: PRE OR PERICONCEPTIONAL
     Route: 064
  38. CLEXANE [Suspect]
     Active Substance: ENOXAPARIN SODIUM
     Indication: FOETAL EXPOSURE DURING PREGNANCY
     Dosage: MATERNAL DOSE, 200 MG, QD
     Route: 064
     Dates: start: 20111214, end: 20120320
  39. XARELTO [Suspect]
     Active Substance: RIVAROXABAN
     Dosage: UNK, NOT KNOWN IF ADMINISTERED BEFORE OR AFTER MISSED ABORTION; TRIMESTER OF EXPOSURE: UNKNOWN
     Route: 064
  40. CYCLOPHOSPHAMIDE. [Concomitant]
     Active Substance: CYCLOPHOSPHAMIDE
     Indication: FOETAL EXPOSURE DURING PREGNANCY
     Route: 064

REACTIONS (9)
  - Death [Fatal]
  - Cardiac septal defect [Unknown]
  - Ventricular septal defect [Unknown]
  - Congenital cardiovascular anomaly [Fatal]
  - Truncus arteriosus persistent [Unknown]
  - Heart disease congenital [Unknown]
  - Premature baby [Unknown]
  - Foetal exposure during pregnancy [Unknown]
  - Low birth weight baby [Unknown]
